FAERS Safety Report 6913426-9 (Version None)
Quarter: 2010Q3

REPORT INFORMATION
  Report Type: 
  Country: None (occurrence: None)
  Receive Date: 20100809
  Receipt Date: 20100729
  Transmission Date: 20110219
  Serious: No
  Sender: FDA-Public Use
  Company Number: US-JNJFOC-20100800241

PATIENT
  Sex: Male
  Weight: 79.38 kg

DRUGS (2)
  1. FENTANYL CITRATE [Suspect]
     Indication: ARTHRALGIA
     Route: 062
  2. OXYCODONE [Concomitant]
     Indication: BREAKTHROUGH PAIN
     Dosage: 5MG/TABLETS TWICE A DAY AS NEEDED
     Route: 048

REACTIONS (2)
  - APPLICATION SITE REACTION [None]
  - WRONG TECHNIQUE IN DRUG USAGE PROCESS [None]
